FAERS Safety Report 4670817-7 (Version None)
Quarter: 2005Q2

REPORT INFORMATION
  Report Type: 
  Country: None (occurrence: None)
  Receive Date: 20050523
  Receipt Date: 20050516
  Transmission Date: 20051028
  Serious: Yes (Hospitalization, Disabling, Other)
  Sender: FDA-Public Use
  Company Number: US-MERCK-0505USA01922

PATIENT
  Age: 45 Year
  Sex: Female
  Weight: 124 kg

DRUGS (1)
  1. VIOXX [Suspect]
     Route: 048

REACTIONS (8)
  - BRONCHITIS [None]
  - BRONCHOSPASM [None]
  - CEREBROVASCULAR ACCIDENT [None]
  - GASTROOESOPHAGEAL REFLUX DISEASE [None]
  - HEADACHE [None]
  - HYPERTENSION [None]
  - INTERVERTEBRAL DISC DISORDER [None]
  - UPPER RESPIRATORY TRACT INFECTION [None]
